FAERS Safety Report 6912243-3 (Version None)
Quarter: 2010Q3

REPORT INFORMATION
  Report Type: 
  Country: None (occurrence: None)
  Receive Date: 20100806
  Receipt Date: 20080129
  Transmission Date: 20110219
  Serious: Yes (Other)
  Sender: FDA-Public Use
  Company Number: US-PFIZER INC-2008010204

PATIENT
  Age: 43 Year
  Sex: Male

DRUGS (7)
  1. DILANTIN [Suspect]
     Indication: EPILEPSY
  2. DEPAKOTE [Suspect]
  3. PRIMIDONE [Suspect]
  4. PHENOBARBITAL [Suspect]
  5. ALL OTHER THERAPEUTIC PRODUCTS [Suspect]
  6. LAMICTAL [Concomitant]
  7. ZONEGRAN [Concomitant]

REACTIONS (1)
  - CONVULSION [None]
